FAERS Safety Report 11853666 (Version 8)
Quarter: 2016Q2

REPORT INFORMATION
  Report Type: Report from Study
  Country: US (occurrence: US)
  Receive Date: 20151219
  Receipt Date: 20160617
  Transmission Date: 20160815
  Serious: Yes (Other)
  Sender: FDA-Public Use
  Company Number: US-AMGEN-USASL2015134093

PATIENT
  Age: 48 Year
  Sex: Female

DRUGS (2)
  1. ENBREL [Suspect]
     Active Substance: ETANERCEPT
     Indication: RHEUMATOID ARTHRITIS
     Dosage: 50 MG, QWK
     Route: 065
     Dates: start: 20151008
  2. ENBREL [Suspect]
     Active Substance: ETANERCEPT
     Indication: FIBROMYALGIA
     Dosage: UNK
     Route: 065

REACTIONS (22)
  - Fungal infection [Unknown]
  - Head discomfort [Unknown]
  - Atelectasis [Not Recovered/Not Resolved]
  - Pain [Unknown]
  - Asthma [Unknown]
  - Liver function test increased [Unknown]
  - Bronchitis [Not Recovered/Not Resolved]
  - Malaise [Unknown]
  - Generalised oedema [Not Recovered/Not Resolved]
  - Pneumonia [Unknown]
  - Injection site haemorrhage [Recovered/Resolved]
  - Peripheral swelling [Unknown]
  - Pneumonitis [Unknown]
  - Gastrooesophageal reflux disease [Unknown]
  - Osteoarthritis [Unknown]
  - Feeling abnormal [Recovered/Resolved]
  - Nasopharyngitis [Recovered/Resolved]
  - Wrong technique in product usage process [Recovered/Resolved]
  - Respiratory tract infection fungal [Unknown]
  - Influenza [Unknown]
  - Gastroenteritis viral [Recovered/Resolved]
  - Swelling face [Unknown]

NARRATIVE: CASE EVENT DATE: 201512
